FAERS Safety Report 17847136 (Version 2)
Quarter: 2020Q2

REPORT INFORMATION
  Report Type: Spontaneous
  Country: CA (occurrence: CA)
  Receive Date: 20200601
  Receipt Date: 20200609
  Transmission Date: 20200714
  Serious: Yes (Life-Threatening, Hospitalization, Other)
  Sender: FDA-Public Use
  Company Number: CA-JNJFOC-20200531996

PATIENT
  Age: 47 Year
  Sex: Female

DRUGS (4)
  1. PARACETAMOL [Suspect]
     Active Substance: ACETAMINOPHEN
     Indication: MUSCULOSKELETAL PAIN
  2. WARFARIN [Interacting]
     Active Substance: WARFARIN
     Indication: MITRAL VALVE REPLACEMENT
     Dosage: DRUG START PERIOD 12 (MONTHS), DURATION OF DRUG ADMIN. 12MONTHS
     Route: 065
  3. PARACETAMOL [Suspect]
     Active Substance: ACETAMINOPHEN
     Indication: PAIN IN EXTREMITY
     Dosage: DRUG START PERIOD 5 (DAYS),  5001000 MG EVERY 4 HOURS WITH A TOTAL DAILY DOSE OF 25004000 MG
     Route: 065
  4. WARFARIN [Interacting]
     Active Substance: WARFARIN
     Indication: RHEUMATIC HEART DISEASE

REACTIONS (5)
  - Chest wall haematoma [Recovered/Resolved]
  - Anticoagulation drug level above therapeutic [Recovered/Resolved]
  - Haemorrhage [Recovered/Resolved]
  - Haemoglobin decreased [Recovered/Resolved]
  - Drug interaction [Recovered/Resolved]
